FAERS Safety Report 20674319 (Version 2)
Quarter: 2022Q2

REPORT INFORMATION
  Report Type: Report from Study
  Country: US (occurrence: None)
  Receive Date: 20220405
  Receipt Date: 20220412
  Transmission Date: 20220721
  Serious: Yes (Hospitalization)
  Sender: FDA-Public Use
  Company Number: US-Eisai Medical Research-EC-2022-112238

PATIENT
  Age: 59 Year
  Sex: Male

DRUGS (1)
  1. LENVIMA [Suspect]
     Active Substance: LENVATINIB
     Indication: Thyroid cancer metastatic
     Route: 048
     Dates: start: 20211129

REACTIONS (5)
  - Headache [Unknown]
  - Ear pain [Unknown]
  - Swollen tongue [Unknown]
  - Tongue erythema [Unknown]
  - Oral infection [Unknown]

NARRATIVE: CASE EVENT DATE: 20210101
